FAERS Safety Report 4807253-6 (Version None)
Quarter: 2005Q4

REPORT INFORMATION
  Report Type: 
  Country: None (occurrence: None)
  Receive Date: 20051020
  Receipt Date: 20051020
  Transmission Date: 20060501
  Serious: Yes (Other)
  Sender: FDA-Public Use
  Company Number: None

PATIENT
  Sex: Female
  Weight: 75.2971 kg

DRUGS (2)
  1. INDOMETHACIN [Suspect]
     Indication: CERVICOBRACHIAL SYNDROME
     Dosage: ONE CAP BID PO   A FEW DAYS IN OCT 2005
     Route: 048
     Dates: start: 20051001
  2. INDAPAMIDE [Concomitant]

REACTIONS (4)
  - DIARRHOEA [None]
  - DRUG DISPENSING ERROR [None]
  - DRUG EFFECT DECREASED [None]
  - POOR QUALITY DRUG ADMINISTERED [None]
